FAERS Safety Report 8801520 (Version 2)
Quarter: 2015Q1

REPORT INFORMATION
  Report Type: Report from Study
  Country: US (occurrence: US)
  Receive Date: 20120921
  Receipt Date: 20150317
  Transmission Date: 20150721
  Serious: Yes (Death)
  Sender: FDA-Public Use
  Company Number: US-ROCHE-1123574

PATIENT
  Age: 69 Year
  Sex: Female

DRUGS (8)
  1. NEULASTA [Concomitant]
     Active Substance: PEGFILGRASTIM
     Route: 065
  2. 5-FU [Concomitant]
     Active Substance: FLUOROURACIL
     Route: 065
  3. GEMZAR [Concomitant]
     Active Substance: GEMCITABINE HYDROCHLORIDE
     Route: 065
  4. 5-FU [Concomitant]
     Active Substance: FLUOROURACIL
     Route: 065
  5. AVASTIN [Suspect]
     Active Substance: BEVACIZUMAB
     Indication: PANCREATIC CARCINOMA
     Route: 065
     Dates: start: 20080903
  6. LEUCOVORIN [Concomitant]
     Active Substance: LEUCOVORIN
     Route: 065
  7. CAMPTOSAR [Concomitant]
     Active Substance: IRINOTECAN HYDROCHLORIDE
     Route: 065
  8. ROXANOL [Concomitant]
     Active Substance: MORPHINE SULFATE
     Route: 065

REACTIONS (5)
  - Death [Fatal]
  - Pain [Unknown]
  - Abdominal distension [Unknown]
  - Asthenia [Unknown]
  - Off label use [Unknown]

NARRATIVE: CASE EVENT DATE: 20081021
